FAERS Safety Report 10774661 (Version 1)
Quarter: 2015Q1

REPORT INFORMATION
  Report Type: Spontaneous
  Country: US (occurrence: None)
  Receive Date: 20150206
  Receipt Date: 20150206
  Transmission Date: 20150721
  Serious: No
  Sender: FDA-Public Use
  Company Number: HYP201309-000054

PATIENT
  Age: 43 Year
  Sex: Male
  Weight: 108.86 kg

DRUGS (7)
  1. PROTONIX [Concomitant]
     Active Substance: PANTOPRAZOLE SODIUM
  2. RAVICTI [Suspect]
     Active Substance: GLYCEROL PHENYLBUTYRATE
     Indication: UREA CYCLE ENZYME DEFICIENCY
     Dosage: AM + PM
     Route: 048
     Dates: start: 201304
  3. SINGULAIR [Concomitant]
     Active Substance: MONTELUKAST SODIUM
  4. LISINOPRIL. [Concomitant]
     Active Substance: LISINOPRIL
  5. L-CITRULLINE [Concomitant]
     Active Substance: CITRULLINE
  6. AMINO-X [Concomitant]
  7. RAVICTI [Suspect]
     Active Substance: GLYCEROL PHENYLBUTYRATE
     Indication: UREA CYCLE ENZYME DEFICIENCY
     Dosage: NOON
     Route: 048
     Dates: start: 201304

REACTIONS (4)
  - Anaemia [None]
  - Petechiae [None]
  - Blood iron decreased [None]
  - Joint swelling [None]

NARRATIVE: CASE EVENT DATE: 20130903
